FAERS Safety Report 5352055-8 (Version None)
Quarter: 2007Q2

REPORT INFORMATION
  Report Type: 
  Country: None (occurrence: None)
  Receive Date: 20070611
  Receipt Date: 20070529
  Transmission Date: 20071010
  Serious: Yes (Other)
  Sender: FDA-Public Use
  Company Number: PHBS2007TN09023

PATIENT
  Age: 31 Year
  Sex: Female

DRUGS (6)
  1. CYCLOSPORINE [Suspect]
     Indication: RENAL TRANSPLANT
     Dosage: 5 MG/KG/DAY
     Route: 065
     Dates: start: 19980101
  2. CYCLOSPORINE [Suspect]
     Dosage: 3 MG/KG/DAY
     Route: 065
     Dates: start: 20040601
  3. AZATHIOPRINE [Suspect]
     Indication: RENAL TRANSPLANT
     Dosage: 2 MG/KG/DAY
     Route: 065
     Dates: start: 19980101
  4. AZATHIOPRINE [Suspect]
     Route: 065
     Dates: start: 20041001
  5. CORTICOSTEROIDS [Suspect]
     Indication: RENAL TRANSPLANT
     Dosage: 7.5 MG/DAY
     Route: 065
     Dates: start: 19980101
  6. MYCOPHENOLATE MOFETIL [Suspect]
     Indication: RENAL TRANSPLANT
     Dosage: 1 G/DAY
     Route: 065

REACTIONS (8)
  - DIABETES MELLITUS [None]
  - DIARRHOEA [None]
  - ECZEMA [None]
  - ERYTHEMA ANNULARE [None]
  - GASTROINTESTINAL DISORDER [None]
  - NEUROTOXICITY [None]
  - PUSTULAR PSORIASIS [None]
  - RASH PUSTULAR [None]
